FAERS Safety Report 6543985-X (Version None)
Quarter: 2010Q1

REPORT INFORMATION
  Report Type: 
  Country: None (occurrence: None)
  Receive Date: 20100120
  Receipt Date: 20100108
  Transmission Date: 20100710
  Serious: Yes (Death, Other)
  Sender: FDA-Public Use
  Company Number: HK-BAYER-201011612GPV

PATIENT
  Age: 78 Year
  Sex: Female

DRUGS (5)
  1. ASPIRIN [Suspect]
     Indication: CARDIOVASCULAR DISORDER
  2. ASPIRIN [Suspect]
  3. PANTOPRAZOLE [Concomitant]
     Route: 048
  4. PANTOPRAZOLE [Concomitant]
     Dosage: AS USED: 8 MG/H
  5. PANTOPRAZOLE [Concomitant]

REACTIONS (2)
  - CARDIAC FAILURE CONGESTIVE [None]
  - DUODENAL ULCER HAEMORRHAGE [None]
